FAERS Safety Report 23196680 (Version 2)
Quarter: 2023Q4

REPORT INFORMATION
  Report Type: Spontaneous
  Country: DE (occurrence: DE)
  Receive Date: 20231117
  Receipt Date: 20231129
  Transmission Date: 20240110
  Serious: Yes (Other)
  Sender: FDA-Public Use
  Company Number: DE-BAYER-2023A162816

PATIENT
  Age: 37 Year
  Sex: Female

DRUGS (6)
  1. BETAFERON [Suspect]
     Active Substance: INTERFERON BETA-1B
     Dosage: UNK
     Dates: start: 20230403
  2. ETHINYL ESTRADIOL\LEVONORGESTREL ACETATE [Suspect]
     Active Substance: ETHINYL ESTRADIOL\LEVONORGESTREL ACETATE
     Dosage: UNK
     Dates: start: 202304
  3. VITAMIN D NOS [Concomitant]
     Active Substance: VITAMIN D NOS
  4. MEDIVITAN [FOLATE SODIUM;HYDROXOCOBALAMIN;LIDOCAINE HYDROCHLORIDE] [Concomitant]
  5. PANTOPRAZOLE [Concomitant]
     Active Substance: PANTOPRAZOLE
  6. IRON [Concomitant]
     Active Substance: IRON

REACTIONS (1)
  - Iron deficiency [Not Recovered/Not Resolved]

NARRATIVE: CASE EVENT DATE: 20231101
